FAERS Safety Report 8013222-8 (Version None)
Quarter: 2011Q4

REPORT INFORMATION
  Report Type: 
  Country: None (occurrence: None)
  Receive Date: 20111229
  Receipt Date: 20111229
  Transmission Date: 20120403
  Serious: No
  Sender: FDA-Public Use
  Company Number: None

PATIENT
  Age: 60 Year
  Sex: Male
  Weight: 40.823 kg

DRUGS (4)
  1. ANTINEOPLASTONS [Concomitant]
     Indication: OVARIAN DISORDER
     Dosage: BASED ON 90 LB BODY WEIGHT
     Route: 048
  2. AFINATOR [Concomitant]
  3. FEMARA [Concomitant]
  4. AVASTIN [Suspect]
     Indication: OVARIAN DISORDER
     Dosage: BASED ON 90 LB BODY WEIGHT
     Route: 041
     Dates: start: 20110624, end: 20110930

REACTIONS (25)
  - ASTHENIA [None]
  - DYSSTASIA [None]
  - IMPAIRED DRIVING ABILITY [None]
  - DYSGEUSIA [None]
  - JOINT STIFFNESS [None]
  - NERVOUSNESS [None]
  - URTICARIA [None]
  - MEMORY IMPAIRMENT [None]
  - PRURITUS [None]
  - CONSTIPATION [None]
  - WEIGHT DECREASED [None]
  - HEART RATE INCREASED [None]
  - INSOMNIA [None]
  - INFECTION [None]
  - FATIGUE [None]
  - DYSPNOEA [None]
  - ERYTHEMA [None]
  - ARTHRALGIA [None]
  - DRY MOUTH [None]
  - RESPIRATORY DISORDER [None]
  - COUGH [None]
  - EPISTAXIS [None]
  - ALOPECIA [None]
  - SKIN EXFOLIATION [None]
  - DIZZINESS [None]
